FAERS Safety Report 18485071 (Version 1)
Quarter: 2020Q4

REPORT INFORMATION
  Report Type: Spontaneous
  Country: US (occurrence: US)
  Receive Date: 20201110
  Receipt Date: 20201110
  Transmission Date: 20210114
  Serious: No
  Sender: FDA-Public Use
  Company Number: US-JNJFOC-20191044550

PATIENT
  Age: 55 Year
  Sex: Female

DRUGS (1)
  1. IMODIUM MULTI-SYMPTOM RELIEF [Suspect]
     Active Substance: DIMETHICONE\LOPERAMIDE HYDROCHLORIDE
     Indication: IRRITABLE BOWEL SYNDROME
     Dosage: 2 CAPLETS PER DAY 3 TIMES A WEEK
     Route: 048
     Dates: start: 20191006, end: 20191030

REACTIONS (2)
  - Self-medication [Unknown]
  - Product packaging issue [Unknown]
